FAERS Safety Report 18211876 (Version 1)
Quarter: 2020Q3

REPORT INFORMATION
  Report Type: Spontaneous
  Country: US (occurrence: US)
  Receive Date: 20200831
  Receipt Date: 20200831
  Transmission Date: 20201103
  Serious: Yes (Other)
  Sender: FDA-Public Use
  Company Number: US-ROCHE-2666781

PATIENT
  Age: 59 Year
  Sex: Male

DRUGS (8)
  1. DOXORUBICIN HYDROCHLORIDE. [Concomitant]
     Active Substance: DOXORUBICIN HYDROCHLORIDE
  2. ACTEMRA [Suspect]
     Active Substance: TOCILIZUMAB
     Indication: PYREXIA
     Route: 065
  3. VINCRISTINE [Concomitant]
     Active Substance: VINCRISTINE
  4. ACTEMRA [Suspect]
     Active Substance: TOCILIZUMAB
     Indication: TACHYCARDIA
  5. RITUXIMAB. [Suspect]
     Active Substance: RITUXIMAB
     Indication: DIFFUSE LARGE B-CELL LYMPHOMA
     Route: 065
  6. CYCLOPHOSPHAMIDE. [Concomitant]
     Active Substance: CYCLOPHOSPHAMIDE
  7. PREDNISOLONE. [Concomitant]
     Active Substance: PREDNISOLONE
  8. ACTEMRA [Suspect]
     Active Substance: TOCILIZUMAB
     Indication: HYPOTENSION

REACTIONS (4)
  - Cytokine release syndrome [Unknown]
  - C-reactive protein increased [Unknown]
  - Diffuse large B-cell lymphoma recurrent [Unknown]
  - Hyperferritinaemia [Unknown]
